FAERS Safety Report 8976945 (Version 2)
Quarter: 2013Q1

REPORT INFORMATION
  Report Type: Spontaneous
  Country: US (occurrence: US)
  Receive Date: 20121220
  Receipt Date: 20130211
  Transmission Date: 20140127
  Serious: Yes (Death)
  Sender: FDA-Public Use
  Company Number: US-ACTELION-A-US2012-76283

PATIENT
  Age: 3 Year
  Sex: Female

DRUGS (5)
  1. ZAVESCA [Suspect]
     Indication: GAUCHER^S DISEASE
     Dosage: UNK UNK, BID
     Route: 048
     Dates: start: 20101228, end: 20121205
  2. ALBUTEROL [Concomitant]
  3. IBUPROFEN [Concomitant]
  4. MIRALAX [Concomitant]
  5. PULMICORT [Concomitant]

REACTIONS (1)
  - Pneumonia respiratory syncytial viral [Fatal]
